FAERS Safety Report 5092059-6 (Version None)
Quarter: 2006Q3

REPORT INFORMATION
  Report Type: 
  Country: None (occurrence: None)
  Receive Date: 20060825
  Receipt Date: 20060811
  Transmission Date: 20061208
  Serious: Yes (Other)
  Sender: FDA-Public Use
  Company Number: 226482

PATIENT
  Sex: Male

DRUGS (4)
  1. AVASTIN [Suspect]
     Indication: COLON CANCER METASTATIC
     Dosage: INTRAVENOUS
     Route: 042
  2. ERLOTINIB (ERLOTINIB) TABLET [Suspect]
     Indication: COLON CANCER METASTATIC
     Dosage: ORAL
     Route: 048
  3. GEMCITABINE [Concomitant]
  4. ERBITUX [Concomitant]

REACTIONS (3)
  - GASTRIC ULCER [None]
  - GASTRITIS HAEMORRHAGIC [None]
  - OESOPHAGITIS ULCERATIVE [None]
